FAERS Safety Report 5780094-1 (Version None)
Quarter: 2008Q2

REPORT INFORMATION
  Report Type: 
  Country: None (occurrence: None)
  Receive Date: 20080620
  Receipt Date: 20080610
  Transmission Date: 20081010
  Serious: Yes (Life-Threatening, Hospitalization, Other)
  Sender: FDA-Public Use
  Company Number: US-BAYER-200812050BCC

PATIENT
  Age: 52 Year
  Sex: Female
  Weight: 84 kg

DRUGS (2)
  1. ALEVE (CAPLET) [Suspect]
     Indication: TOOTHACHE
     Dosage: AS USED: 440-220 MG  UNIT DOSE: 220 MG
     Route: 048
     Dates: start: 20000101, end: 20000101
  2. ONE-A-DAY WOMEN'S [Suspect]
     Indication: VITAMIN SUPPLEMENTATION
     Route: 048

REACTIONS (6)
  - ANAPHYLACTIC SHOCK [None]
  - RESPIRATORY ARREST [None]
  - THROAT TIGHTNESS [None]
  - TUNNEL VISION [None]
  - URTICARIA [None]
  - VISUAL DISTURBANCE [None]
